FAERS Safety Report 7936663-3 (Version None)
Quarter: 2011Q4

REPORT INFORMATION
  Report Type: 
  Country: None (occurrence: None)
  Receive Date: 20111121
  Receipt Date: 20110620
  Transmission Date: 20120403
  Serious: No
  Sender: FDA-Public Use
  Company Number: 2011029443

PATIENT
  Age: 7 Year
  Sex: Female
  Weight: 19.9583 kg

DRUGS (3)
  1. AMOXCILLIN (AMOXICILLIN) [Concomitant]
  2. BERINERT [Suspect]
     Indication: HEREDITARY ANGIOEDEMA
     Dosage: (10 ML, 500 UNITS;4 ML/MIN. INTRAVENOUS (NOT OTHERWISE SPECIFIED))
     Route: 042
  3. BENADRYL [Concomitant]

REACTIONS (1)
  - UNEVALUABLE EVENT [None]
